FAERS Safety Report 11585631 (Version 2)
Quarter: 2015Q4

REPORT INFORMATION
  Report Type: Spontaneous
  Country: DE (occurrence: DE)
  Receive Date: 20151001
  Receipt Date: 20151001
  Transmission Date: 20160304
  Serious: Yes (Other)
  Sender: FDA-Public Use
  Company Number: DE-BAYER-2015-429096

PATIENT
  Sex: Female

DRUGS (1)
  1. MIRENA [Suspect]
     Active Substance: LEVONORGESTREL
     Dosage: 20 MCG/24HR, CONT
     Route: 015

REACTIONS (14)
  - Suicidal ideation [None]
  - Depression [None]
  - Incontinence [None]
  - Alopecia [None]
  - Headache [None]
  - Hormone level abnormal [None]
  - Weight increased [None]
  - Mental disorder [None]
  - Anxiety [None]
  - Acne [None]
  - Diarrhoea [None]
  - Fatigue [None]
  - Somnolence [None]
  - Ocular discomfort [None]
